FAERS Safety Report 4993652-9 (Version None)
Quarter: 2006Q2

REPORT INFORMATION
  Report Type: 
  Country: None (occurrence: None)
  Receive Date: 20060505
  Receipt Date: 20060425
  Transmission Date: 20061013
  Serious: Yes (Hospitalization)
  Sender: FDA-Public Use
  Company Number: US-MERCK-0604USA04030

PATIENT
  Age: 50 Year
  Sex: Female
  Weight: 73 kg

DRUGS (7)
  1. VIOXX [Suspect]
     Indication: PAIN IN EXTREMITY
     Route: 048
     Dates: start: 20010501, end: 20020501
  2. VIOXX [Suspect]
     Indication: ARTHRALGIA
     Route: 048
     Dates: start: 20010501, end: 20020501
  3. VITAMINS (UNSPECIFIED) [Concomitant]
     Route: 065
  4. ADVIL [Concomitant]
     Route: 065
  5. CHLORPHENIRAMINE MALEATE [Concomitant]
     Route: 065
  6. MECLIZINE [Concomitant]
     Route: 065
  7. INSULIN [Concomitant]
     Route: 065

REACTIONS (1)
  - CEREBROVASCULAR ACCIDENT [None]
